FAERS Safety Report 25944188 (Version 3)
Quarter: 2025Q4

REPORT INFORMATION
  Report Type: Spontaneous
  Country: GB (occurrence: GB)
  Receive Date: 20251021
  Receipt Date: 20251121
  Transmission Date: 20260118
  Serious: Yes (Congenital Anomaly, Other)
  Sender: BAXTER
  Company Number: None

PATIENT
  Sex: Female

DRUGS (6)
  1. ONDANSETRON [Suspect]
     Active Substance: ONDANSETRON
     Indication: Vomiting
     Dosage: 1 DOSAGE FORM (RECEIVED A SINGLE IV DOSE IN HOSPITAL, EXACT TIME UNKNOWN)
     Route: 064
  2. METOCLOPRAMIDE [Suspect]
     Active Substance: METOCLOPRAMIDE
     Indication: Vomiting
     Route: 065
  3. ONDANSETRON [Suspect]
     Active Substance: ONDANSETRON
     Indication: Vomiting
     Dosage: 4 MG, QD
     Route: 064
     Dates: start: 20250414, end: 20250601
  4. CYCLIZINE [Concomitant]
     Active Substance: CYCLIZINE
     Indication: Vomiting
     Dosage: UNK
     Route: 065
  5. DOXYLAMINE SUCCINATE\PYRIDOXINE HYDROCHLORIDE [Concomitant]
     Active Substance: DOXYLAMINE SUCCINATE\PYRIDOXINE HYDROCHLORIDE
     Indication: Vomiting
     Dosage: UNK
     Route: 065
  6. OMEPRAZOLE [Concomitant]
     Active Substance: OMEPRAZOLE
     Indication: Vomiting
     Dosage: UNK
     Route: 065

REACTIONS (3)
  - Cleft lip [Not Recovered/Not Resolved]
  - Foetal exposure during pregnancy [Unknown]
  - Vomiting [Unknown]

NARRATIVE: CASE EVENT DATE: 20251007
